FAERS Safety Report 9678380 (Version 1)
Quarter: 2013Q4

REPORT INFORMATION
  Report Type: Spontaneous
  Country: US (occurrence: None)
  Receive Date: 20131106
  Receipt Date: 20131106
  Transmission Date: 20140711
  Serious: Yes (Hospitalization)
  Sender: FDA-Public Use
  Company Number: 2013AP009471

PATIENT
  Age: 31 Year
  Sex: Male

DRUGS (2)
  1. METFORMIN [Suspect]
     Route: 048
  2. ATRIPLA [Concomitant]

REACTIONS (11)
  - Hypoglycaemia [None]
  - Lactic acidosis [None]
  - Renal impairment [None]
  - Suicide attempt [None]
  - Intentional overdose [None]
  - Somnolence [None]
  - Respiratory rate increased [None]
  - Blood pressure systolic decreased [None]
  - Blood urea increased [None]
  - Blood creatinine increased [None]
  - Renal impairment [None]
